FAERS Safety Report 18558676 (Version 2)
Quarter: 2025Q4

REPORT INFORMATION
  Report Type: Report from Study
  Country: US (occurrence: US)
  Receive Date: 20201130
  Receipt Date: 20251126
  Transmission Date: 20260118
  Serious: Yes (Hospitalization, Other)
  Sender: TAKEDA
  Company Number: US-TAKEDA-2020TUS052307

PATIENT
  Sex: Female
  Weight: 54 kg

DRUGS (3)
  1. VEDOLIZUMAB [Suspect]
     Active Substance: VEDOLIZUMAB
     Indication: Crohn^s disease
     Dosage: 300 MILLIGRAM
  2. ATENOLOL [Concomitant]
     Active Substance: ATENOLOL
     Indication: Blood pressure measurement
     Dosage: 100 MILLIGRAM, QD
  3. POTASSIUM [Concomitant]
     Active Substance: POTASSIUM
     Dosage: 750 MILLIGRAM, BID

REACTIONS (7)
  - Diverticulitis [Unknown]
  - Diverticular perforation [Unknown]
  - Liver abscess [Unknown]
  - Pelvic abscess [Unknown]
  - Fistula [Unknown]
  - Asthenia [Unknown]
  - Weight decreased [Unknown]
